FAERS Safety Report 6282793-4 (Version None)
Quarter: 2009Q3

REPORT INFORMATION
  Report Type: 
  Country: None (occurrence: None)
  Receive Date: 20090724
  Receipt Date: 20090716
  Transmission Date: 20100115
  Serious: Yes (Death)
  Sender: FDA-Public Use
  Company Number: US-PFIZER INC-2009229699

PATIENT
  Sex: Female
  Weight: 67.585 kg

DRUGS (7)
  1. SUTENT [Suspect]
     Indication: RENAL CELL CARCINOMA
     Dosage: 50 MG, UNK
     Route: 048
     Dates: start: 20090515
  2. BACTRIM [Suspect]
     Indication: URINARY TRACT INFECTION
     Dosage: FREQUENCY: 2X/DAY, EVERY DAY;
     Route: 048
     Dates: start: 20090528, end: 20090101
  3. HYDROMORPHONE [Concomitant]
  4. PANTOPRAZOLE [Concomitant]
  5. METHYLPHENIDATE [Concomitant]
  6. MORPHINE SULFATE [Concomitant]
  7. BENAZEPRIL [Concomitant]

REACTIONS (1)
  - DEATH [None]
